FAERS Safety Report 8311919-3 (Version None)
Quarter: 2012Q2

REPORT INFORMATION
  Report Type: 
  Country: None (occurrence: None)
  Receive Date: 20120425
  Receipt Date: 20120402
  Transmission Date: 20120825
  Serious: Yes (Hospitalization)
  Sender: FDA-Public Use
  Company Number: FR-EISAI INC-E3810-05423-SPO-FR

PATIENT
  Sex: Female

DRUGS (10)
  1. RABEPRAZOLE SODIUM [Suspect]
     Route: 048
  2. NITRODERM [Concomitant]
     Route: 062
  3. ZYRTEC [Concomitant]
  4. GALANTAMINE HYDROBROMIDE [Suspect]
     Route: 048
     Dates: end: 20120212
  5. CANDESARTAN CILEXETIL [Concomitant]
     Route: 048
  6. LEVOTHYROXINE SODIUM [Concomitant]
     Route: 048
  7. LASIX [Concomitant]
     Route: 048
  8. PLAVIX [Concomitant]
     Route: 048
  9. POLYETHYLENE GLYCOL [Concomitant]
     Route: 048
  10. POTASSIUM CHLORIDE [Concomitant]

REACTIONS (5)
  - VOMITING [None]
  - DECREASED APPETITE [None]
  - DIARRHOEA [None]
  - NAUSEA [None]
  - BRADYCARDIA [None]
